FAERS Safety Report 10313802 (Version 1)
Quarter: 2014Q3

REPORT INFORMATION
  Report Type: Spontaneous
  Country: FR (occurrence: FR)
  Receive Date: 20140718
  Receipt Date: 20140718
  Transmission Date: 20150326
  Serious: Yes (Hospitalization)
  Sender: FDA-Public Use
  Company Number: FR-PFIZER INC-2014198822

PATIENT
  Age: 1 Month
  Sex: Female

DRUGS (3)
  1. CORDARONE [Suspect]
     Active Substance: AMIODARONE HYDROCHLORIDE
     Indication: SUPRAVENTRICULAR TACHYCARDIA
     Dosage: 140 MG, DAILY
     Route: 048
     Dates: start: 20140621, end: 20140623
  2. DIGOXINE [Suspect]
     Active Substance: DIGOXIN
     Indication: RESUSCITATION
     Dosage: UNK
     Route: 042
     Dates: start: 20140603, end: 20140617
  3. CORDARONE [Suspect]
     Active Substance: AMIODARONE HYDROCHLORIDE
     Dosage: 70 MG, DAILY
     Route: 065

REACTIONS (3)
  - Fat necrosis [Recovering/Resolving]
  - Swelling [Recovering/Resolving]
  - Panniculitis [Recovering/Resolving]

NARRATIVE: CASE EVENT DATE: 20140624
